FAERS Safety Report 7527571-0 (Version None)
Quarter: 2011Q2

REPORT INFORMATION
  Report Type: 
  Country: None (occurrence: None)
  Receive Date: 20110607
  Receipt Date: 20110602
  Transmission Date: 20111010
  Serious: No
  Sender: FDA-Public Use
  Company Number: US-PFIZER INC-2011121436

PATIENT
  Sex: Female
  Weight: 46.712 kg

DRUGS (3)
  1. ACETAMINOPHEN [Concomitant]
     Dosage: UNK
  2. CELEBREX [Suspect]
     Indication: PRODUCT USED FOR UNKNOWN INDICATION
     Dosage: 200 MG, UNK
     Route: 048
     Dates: start: 20110101, end: 20110101
  3. LORTAB [Concomitant]
     Indication: ARTHRALGIA
     Dosage: 5/500MG, AS NEEDED
     Route: 048

REACTIONS (5)
  - NAUSEA [None]
  - FEELING ABNORMAL [None]
  - DRUG INEFFECTIVE [None]
  - NASOPHARYNGITIS [None]
  - PAIN [None]
